FAERS Safety Report 24293248 (Version 1)
Quarter: 2024Q3

REPORT INFORMATION
  Report Type: Spontaneous
  Country: US (occurrence: None)
  Receive Date: 20240906
  Receipt Date: 20240906
  Transmission Date: 20241016
  Serious: No
  Sender: DOMPE FARMACEUTICI
  Company Number: US-FARMAPROD-202308-202312-3706

PATIENT
  Sex: Female

DRUGS (19)
  1. OXERVATE [Suspect]
     Active Substance: CENEGERMIN-BKBJ
     Indication: Neurotrophic keratopathy
     Route: 047
     Dates: start: 20231130
  2. BLOOD SERUM TEARS [Concomitant]
  3. MODAFINIL [Concomitant]
     Active Substance: MODAFINIL
  4. CEFDINIR [Concomitant]
     Active Substance: CEFDINIR
  5. IVIZIA [Concomitant]
     Active Substance: POVIDONE
  6. GABAPENTIN [Concomitant]
     Active Substance: GABAPENTIN
  7. LISINOPRIL [Concomitant]
     Active Substance: LISINOPRIL
  8. DOXYCYCLINE HYCLATE [Concomitant]
     Active Substance: DOXYCYCLINE HYCLATE
  9. SPIRONOLACTONE [Concomitant]
     Active Substance: SPIRONOLACTONE
  10. OMEPRAZOLE [Concomitant]
     Active Substance: OMEPRAZOLE
  11. AMLODIPINE BESYLATE [Concomitant]
     Active Substance: AMLODIPINE BESYLATE
  12. PRAVASTATIN SODIUM [Concomitant]
     Active Substance: PRAVASTATIN SODIUM
  13. LORATADINE [Concomitant]
     Active Substance: LORATADINE
  14. SINGULAIR [Concomitant]
     Active Substance: MONTELUKAST SODIUM
  15. ALBUTEROL SULFATE [Concomitant]
     Active Substance: ALBUTEROL SULFATE
     Dosage: HYDROFLUOROALKANE
  16. HYPOCHLOROUS ACID [Concomitant]
     Active Substance: HYPOCHLOROUS ACID
  17. PROLENSA [Concomitant]
     Active Substance: BROMFENAC SODIUM
  18. LUMIFY [Concomitant]
     Active Substance: BRIMONIDINE TARTRATE
  19. TYRVAYA [Concomitant]
     Active Substance: VARENICLINE TARTRATE
     Dosage: 0.03/SPRAY

REACTIONS (1)
  - Blepharospasm [Unknown]
